FAERS Safety Report 7284553-4 (Version None)
Quarter: 2011Q1

REPORT INFORMATION
  Report Type: 
  Country: None (occurrence: None)
  Receive Date: 20110209
  Receipt Date: 20101119
  Transmission Date: 20110831
  Serious: Yes (Hospitalization)
  Sender: FDA-Public Use
  Company Number: FR-BAYER-2010-000833

PATIENT
  Sex: Male

DRUGS (10)
  1. IZILOX [Suspect]
     Indication: RESPIRATORY TRACT INFECTION
     Dosage: DAILY DOSE 400 MG
     Route: 048
     Dates: start: 20100908, end: 20101026
  2. TRANXENE [Concomitant]
  3. SYMBICORT [Concomitant]
  4. METHADONE HYDROCHLORIDE [Concomitant]
  5. ZECLAR [Suspect]
     Dosage: DAILY DOSE 1 G
     Route: 048
     Dates: start: 20100908, end: 20101026
  6. NEXIUM [Concomitant]
  7. BRICANYL [Concomitant]
  8. ESIDRIX [Concomitant]
  9. TRIATEC [Concomitant]
  10. SPIRIVA [Concomitant]

REACTIONS (1)
  - RHABDOMYOLYSIS [None]
